FAERS Safety Report 11558499 (Version 1)
Quarter: 2015Q3

REPORT INFORMATION
  Report Type: Spontaneous
  Country: US (occurrence: None)
  Receive Date: 20150925
  Receipt Date: 20150925
  Transmission Date: 20151125
  Serious: No
  Sender: FDA-Public Use
  Company Number: None

PATIENT
  Sex: Female

DRUGS (1)
  1. ENBREL [Suspect]
     Active Substance: ETANERCEPT
     Route: 058

REACTIONS (6)
  - Burning sensation [None]
  - Urticaria [None]
  - Injection site rash [None]
  - Pruritus [None]
  - Skin warm [None]
  - Skin disorder [None]
